FAERS Safety Report 16019042 (Version 1)
Quarter: 2019Q1

REPORT INFORMATION
  Report Type: Spontaneous
  Country: US (occurrence: US)
  Receive Date: 20190228
  Receipt Date: 20190228
  Transmission Date: 20190418
  Serious: Yes (Other)
  Sender: FDA-Public Use
  Company Number: US-PFIZER INC-2018079474

PATIENT
  Age: 11 Year
  Sex: Male

DRUGS (1)
  1. GENOTROPIN [Suspect]
     Active Substance: SOMATROPIN
     Dosage: 1.8 MG, DAILY

REACTIONS (8)
  - Blood follicle stimulating hormone decreased [Unknown]
  - Insulin-like growth factor decreased [Unknown]
  - Blood creatinine increased [Unknown]
  - Alanine aminotransferase increased [Unknown]
  - Product dose omission [Unknown]
  - Blood luteinising hormone decreased [Unknown]
  - Weight decreased [Unknown]
  - Aspartate aminotransferase increased [Unknown]
